FAERS Safety Report 4653491-5 (Version None)
Quarter: 2005Q2

REPORT INFORMATION
  Report Type: 
  Country: None (occurrence: None)
  Receive Date: 20050404
  Receipt Date: 20041117
  Transmission Date: 20051028
  Serious: No
  Sender: FDA-Public Use
  Company Number: US_0411108625

PATIENT
  Age: 35 Year
  Sex: Female

DRUGS (3)
  1. CYMBALTA [Suspect]
     Indication: DEPRESSED MOOD
     Dosage: 60 MG/D
     Dates: start: 20040901
  2. CYMBALTA [Suspect]
     Indication: PANIC ATTACK
     Dosage: 60 MG/D
     Dates: start: 20040901
  3. CYMBALTA [Suspect]
     Indication: STRESS
     Dosage: 60 MG/D
     Dates: start: 20040901

REACTIONS (5)
  - ANXIETY [None]
  - BLEPHAROSPASM [None]
  - CRYING [None]
  - FATIGUE [None]
  - FEELING ABNORMAL [None]
